FAERS Safety Report 6370845-X (Version None)
Quarter: 2009Q3

REPORT INFORMATION
  Report Type: 
  Country: None (occurrence: None)
  Receive Date: 20090923
  Receipt Date: 20070921
  Transmission Date: 20100115
  Serious: Yes (Other)
  Sender: FDA-Public Use
  Company Number: US-ASTRAZENECA-2006UW23914

PATIENT
  Age: 15387 Day
  Sex: Male
  Weight: 95.5 kg

DRUGS (46)
  1. SEROQUEL [Suspect]
     Indication: SCHIZOPHRENIA
     Dosage: 25-1000 MG
     Route: 048
     Dates: start: 20010115, end: 20030209
  2. SEROQUEL [Suspect]
     Indication: ANXIETY
     Dosage: 25-1000 MG
     Route: 048
     Dates: start: 20010115, end: 20030209
  3. SEROQUEL [Suspect]
     Indication: DEPRESSION
     Dosage: 25-1000 MG
     Route: 048
     Dates: start: 20010115, end: 20030209
  4. SEROQUEL [Suspect]
     Indication: SLEEP DISORDER
     Dosage: 25-1000 MG
     Route: 048
     Dates: start: 20010115, end: 20030209
  5. SEROQUEL [Suspect]
     Dosage: 25-1000 MG
     Route: 048
     Dates: start: 20030310
  6. SEROQUEL [Suspect]
     Dosage: 25-1000 MG
     Route: 048
     Dates: start: 20030310
  7. SEROQUEL [Suspect]
     Dosage: 25-1000 MG
     Route: 048
     Dates: start: 20030310
  8. SEROQUEL [Suspect]
     Dosage: 25-1000 MG
     Route: 048
     Dates: start: 20030310
  9. SEROQUEL [Suspect]
     Dosage: 100-200MG
     Route: 048
  10. SEROQUEL [Suspect]
     Dosage: 100-200MG
     Route: 048
  11. SEROQUEL [Suspect]
     Dosage: 100-200MG
     Route: 048
  12. SEROQUEL [Suspect]
     Dosage: 100-200MG
     Route: 048
  13. MARIJUANA [Concomitant]
  14. METHADONE [Concomitant]
  15. ZYPREXA [Concomitant]
     Dates: start: 19980101, end: 20020101
  16. ZYPREXA [Concomitant]
     Dosage: 2.5-10 MG
     Route: 048
     Dates: start: 19980120
  17. TRILAFON [Concomitant]
     Dates: start: 19820101, end: 19970101
  18. TRILAFON [Concomitant]
     Dosage: 8-40 MG
     Route: 048
     Dates: start: 19910926
  19. THORAZINE [Concomitant]
     Dates: start: 19950101
  20. RISPERDAL [Concomitant]
     Dates: start: 20040101
  21. RISPERDAL [Concomitant]
     Dosage: 0.5-3 MG
     Dates: start: 19960625
  22. GEODON [Concomitant]
     Dates: start: 20020101, end: 20040101
  23. GEODON [Concomitant]
     Dosage: 20-120 MG
     Dates: start: 20040608
  24. ABILIFY [Concomitant]
     Dates: start: 20030101
  25. ABILIFY [Concomitant]
     Dosage: 5-30 MG
     Dates: start: 20031107
  26. DIAZEPAM [Concomitant]
     Dosage: 5-35 MG
     Route: 048
     Dates: start: 19960625
  27. TRAZODONE [Concomitant]
     Indication: SLEEP DISORDER
     Dosage: 25-150 MG
     Dates: start: 20010129
  28. VISTARIL [Concomitant]
     Dosage: 25-150 MG
     Dates: start: 19960410
  29. PROTONIX [Concomitant]
     Route: 048
     Dates: start: 20020724
  30. SULINDAC [Concomitant]
     Dosage: 200-400 MG
     Dates: start: 20000918
  31. SINEQUAN [Concomitant]
     Indication: SLEEP DISORDER
     Dosage: 25-50 MG
     Dates: start: 20030212
  32. PROPRANOLOL HCL [Concomitant]
     Dates: start: 20030411
  33. ATIVAN [Concomitant]
     Dosage: 0.5-2 MG
     Route: 048
     Dates: start: 19910903
  34. TRILEPTAL [Concomitant]
     Dosage: 150-900 MG
     Dates: start: 20031226
  35. NICOTINE [Concomitant]
     Dosage: 15-21 MG/DAY
     Route: 062
     Dates: start: 20040608
  36. HALDOL [Concomitant]
     Indication: AGITATION
     Dosage: 1-2 MG
     Dates: start: 20040606
  37. HALDOL [Concomitant]
     Indication: PSYCHOTIC BEHAVIOUR
     Dosage: 1-2 MG
     Dates: start: 20040606
  38. BENADRYL [Concomitant]
     Indication: EXTRAPYRAMIDAL DISORDER
     Dosage: 25-50 MG
     Dates: start: 19910915
  39. BENADRYL [Concomitant]
     Indication: SLEEP DISORDER
     Dosage: 25-50 MG
     Dates: start: 19910915
  40. AMBIEN [Concomitant]
     Indication: SLEEP DISORDER
     Dates: start: 20031030
  41. PROLIXIN [Concomitant]
     Dosage: 5-15 MG
     Route: 048
     Dates: start: 19910903
  42. COGENTIN [Concomitant]
     Route: 048
     Dates: start: 19910903
  43. MELLARIL [Concomitant]
     Dates: start: 19910920
  44. DOXYCYCLINE [Concomitant]
     Route: 048
     Dates: start: 20060608
  45. PREDNISONE [Concomitant]
     Dosage: 10-60 MG
     Route: 048
     Dates: start: 20060608
  46. ALBUTEROL [Concomitant]
     Dosage: 2 PUFFS EVERY SIX HOURS
     Dates: start: 20060608

REACTIONS (10)
  - DIABETES MELLITUS [None]
  - DIABETES MELLITUS INADEQUATE CONTROL [None]
  - HYPERGLYCAEMIA [None]
  - MYOCARDIAL INFARCTION [None]
  - PALPITATIONS [None]
  - PANCREATITIS [None]
  - PANCREATITIS ACUTE [None]
  - TACHYCARDIA [None]
  - TARDIVE DYSKINESIA [None]
  - WEIGHT INCREASED [None]
